FAERS Safety Report 10193980 (Version 1)
Quarter: 2014Q2

REPORT INFORMATION
  Report Type: Spontaneous
  Country: US (occurrence: US)
  Receive Date: 20140524
  Receipt Date: 20140524
  Transmission Date: 20141212
  Serious: No
  Sender: FDA-Public Use
  Company Number: US-SANOFI-AVENTIS-2013SA046920

PATIENT
  Age: 71 Year
  Sex: Female

DRUGS (7)
  1. LANTUS SOLOSTAR [Suspect]
     Indication: TYPE 2 DIABETES MELLITUS
     Dosage: DOSE:10 UNIT(S)
     Route: 058
  2. LANTUS SOLOSTAR [Suspect]
     Indication: TYPE 2 DIABETES MELLITUS
     Dosage: DOSE:45 UNIT(S)
     Route: 058
     Dates: start: 2013
  3. SOLOSTAR [Suspect]
     Indication: DEVICE THERAPY
  4. SOLOSTAR [Suspect]
     Indication: DEVICE THERAPY
     Dates: start: 2013
  5. JANUVIA [Concomitant]
  6. GLYBURIDE [Concomitant]
  7. METFORMIN [Concomitant]

REACTIONS (4)
  - Visual impairment [Unknown]
  - Visual impairment [Unknown]
  - Decreased appetite [Unknown]
  - Blood glucose decreased [Unknown]
